FAERS Safety Report 10229681 (Version 1)
Quarter: 2014Q2

REPORT INFORMATION
  Report Type: Spontaneous
  Country: US (occurrence: None)
  Receive Date: 20140609
  Receipt Date: 20140609
  Transmission Date: 20141212
  Serious: Yes (Hospitalization)
  Sender: FDA-Public Use
  Company Number: FK201402190

PATIENT
  Age: 53 Year
  Sex: Male

DRUGS (11)
  1. CEFAZOLIN [Suspect]
     Indication: SEPSIS
     Route: 042
  2. CEFAZOLIN [Suspect]
     Indication: OSTEOMYELITIS
     Route: 042
  3. ACETAMINOPHEN (PARACETAMOL) [Concomitant]
  4. OXYCODONE (OXYCODONE) [Concomitant]
  5. TRAMADOL (TRAMADOL) [Concomitant]
  6. CALCIUM ACETATE (CALCIUM ACETATE) [Concomitant]
  7. DILTIAZEM (DILTIAZEM) [Concomitant]
  8. FERROUS SULFATE (FERROUS SULFATE) [Concomitant]
  9. HYDRALAZINE (HYDRALAZINE) [Concomitant]
  10. ATORVASTATIN (ATORVASTATIN) [Concomitant]
  11. INSULIN (INSULIN) [Concomitant]

REACTIONS (9)
  - Necrotising oesophagitis [None]
  - Wound haemorrhage [None]
  - Haematemesis [None]
  - International normalised ratio increased [None]
  - Prothrombin time prolonged [None]
  - Haemoglobin decreased [None]
  - Haematocrit decreased [None]
  - Melaena [None]
  - Wound infection [None]
